FAERS Safety Report 11230756 (Version 1)
Quarter: 2015Q2

REPORT INFORMATION
  Report Type: Spontaneous
  Country: US (occurrence: None)
  Receive Date: 20150612
  Receipt Date: 20150612
  Transmission Date: 20150821
  Serious: Yes (Hospitalization, Other)
  Sender: FDA-Public Use
  Company Number: 2014AP003013

PATIENT
  Age: 7 Year
  Sex: Female

DRUGS (3)
  1. TOPIRAMATE (TOPIRAMATE) UNKNOWN [Suspect]
     Active Substance: TOPIRAMATE
     Indication: SEIZURE
  2. TOPIRAMATE (TOPIRAMATE) UNKNOWN [Suspect]
     Active Substance: TOPIRAMATE
     Indication: HEADACHE
  3. CYPROHEPTADINE. [Concomitant]
     Active Substance: CYPROHEPTADINE

REACTIONS (2)
  - Angle closure glaucoma [None]
  - Myopia [None]
